FAERS Safety Report 9716974 (Version 1)
Quarter: 2013Q4

REPORT INFORMATION
  Report Type: Spontaneous
  Country: US (occurrence: US)
  Receive Date: 20131127
  Receipt Date: 20131127
  Transmission Date: 20140711
  Serious: No
  Sender: FDA-Public Use
  Company Number: US-GILEAD-2009-0020153

PATIENT
  Sex: Female
  Weight: 115.67 kg

DRUGS (13)
  1. LETAIRIS [Suspect]
     Indication: PULMONARY ARTERIAL HYPERTENSION
     Route: 048
     Dates: start: 20070915
  2. REVATIO [Concomitant]
  3. ALDACTONE [Concomitant]
  4. ALBUTEROL [Concomitant]
  5. OXYGEN [Concomitant]
  6. MIRTAZAPINE [Concomitant]
  7. CARISOPRODOL [Concomitant]
  8. HYDROCODONE-APAP [Concomitant]
  9. FLUOXETINE [Concomitant]
  10. LAMICTAL [Concomitant]
  11. TEMAZEPAM [Concomitant]
  12. SEROQUEL [Concomitant]
  13. LEXAPRO [Concomitant]

REACTIONS (1)
  - Swelling [Unknown]
